FAERS Safety Report 7429471-3 (Version None)
Quarter: 2011Q2

REPORT INFORMATION
  Report Type: 
  Country: None (occurrence: None)
  Receive Date: 20110421
  Receipt Date: 20110415
  Transmission Date: 20111010
  Serious: Yes (Other)
  Sender: FDA-Public Use
  Company Number: US-SANOFI-AVENTIS-2011SA023992

PATIENT
  Age: 70 Year
  Sex: Female

DRUGS (5)
  1. VALIUM [Concomitant]
     Indication: ANXIETY
  2. ALTACE [Concomitant]
  3. ASPIRIN [Concomitant]
  4. MULTAQ [Suspect]
     Indication: ATRIAL FIBRILLATION
     Route: 048
  5. LIPITOR [Concomitant]

REACTIONS (8)
  - DIARRHOEA [None]
  - HEART RATE INCREASED [None]
  - DRUG ADMINISTRATION ERROR [None]
  - ANXIETY [None]
  - PALPITATIONS [None]
  - PAIN [None]
  - ATRIAL FIBRILLATION [None]
  - DEPRESSION [None]
